FAERS Safety Report 7892144-7 (Version None)
Quarter: 2011Q4

REPORT INFORMATION
  Report Type: 
  Country: None (occurrence: None)
  Receive Date: 20111103
  Receipt Date: 20110815
  Transmission Date: 20120403
  Serious: No
  Sender: FDA-Public Use
  Company Number: US-AMGEN-USASP2011041590

PATIENT
  Age: 62 Year
  Sex: Female

DRUGS (1)
  1. ENBREL [Suspect]
     Indication: PSORIATIC ARTHROPATHY
     Dosage: 50 MG, QWK
     Dates: start: 20010401

REACTIONS (5)
  - PSORIATIC ARTHROPATHY [None]
  - BLADDER DISORDER [None]
  - INFLUENZA [None]
  - CATARACT [None]
  - INJECTION SITE PAIN [None]
